FAERS Safety Report 11138090 (Version 2)
Quarter: 2016Q1

REPORT INFORMATION
  Report Type: Report from Study
  Country: US (occurrence: US)
  Receive Date: 20150526
  Receipt Date: 20160328
  Transmission Date: 20160525
  Serious: Yes (Hospitalization)
  Sender: FDA-Public Use
  Company Number: US-ACTELION-A-NJ2014-93645

PATIENT
  Age: 49 Year
  Sex: Female

DRUGS (2)
  1. SILDENAFIL. [Concomitant]
     Active Substance: SILDENAFIL
  2. VELETRI [Suspect]
     Active Substance: EPOPROSTENOL
     Indication: PULMONARY HYPERTENSION
     Dosage: 21.9 NG/KG, PER MIN
     Route: 042
     Dates: start: 20100712

REACTIONS (7)
  - Cardiac disorder [Unknown]
  - Disorientation [Unknown]
  - Rash [Unknown]
  - Pulmonary arterial hypertension [Unknown]
  - Oxygen saturation decreased [Unknown]
  - Pulmonary arterial pressure increased [Unknown]
  - Wheezing [Unknown]

NARRATIVE: CASE EVENT DATE: 20131207
